FAERS Safety Report 7689902-0 (Version None)
Quarter: 2011Q3

REPORT INFORMATION
  Report Type: 
  Country: None (occurrence: None)
  Receive Date: 20110818
  Receipt Date: 20110808
  Transmission Date: 20111222
  Serious: No
  Sender: FDA-Public Use
  Company Number: US-BIOGENIDEC-2011BI019629

PATIENT
  Age: 50 Year
  Sex: Female

DRUGS (3)
  1. TYSABRI [Suspect]
     Indication: MULTIPLE SCLEROSIS
     Route: 042
     Dates: start: 20110322
  2. AVONEX [Concomitant]
     Indication: MULTIPLE SCLEROSIS
     Route: 030
     Dates: start: 20030710
  3. TYSABRI [Suspect]
     Route: 042
     Dates: start: 20070627, end: 20090701

REACTIONS (4)
  - HEADACHE [None]
  - BLOOD PRESSURE DIASTOLIC INCREASED [None]
  - FATIGUE [None]
  - KNEE OPERATION [None]
